FAERS Safety Report 10201310 (Version 4)
Quarter: 2014Q3

REPORT INFORMATION
  Report Type: Spontaneous
  Country: US (occurrence: US)
  Receive Date: 20140528
  Receipt Date: 20140709
  Transmission Date: 20150326
  Serious: Yes (Other)
  Sender: FDA-Public Use
  Company Number: US-BAYER-2014-079090

PATIENT
  Age: 35 Year
  Sex: Female
  Weight: 89 kg

DRUGS (1)
  1. MIRENA [Suspect]
     Active Substance: LEVONORGESTREL
     Indication: CONTRACEPTION
     Dosage: 20 MCG/24HR, CONT
     Route: 015
     Dates: start: 20100105, end: 20140403

REACTIONS (4)
  - Device dislocation [None]
  - Device difficult to use [None]
  - Embedded device [None]
  - Device breakage [None]

NARRATIVE: CASE EVENT DATE: 20140403
